FAERS Safety Report 6068701-X (Version None)
Quarter: 2009Q1

REPORT INFORMATION
  Report Type: 
  Country: None (occurrence: None)
  Receive Date: 20090206
  Receipt Date: 20090128
  Transmission Date: 20090719
  Serious: Yes (Hospitalization)
  Sender: FDA-Public Use
  Company Number: B0556385A

PATIENT
  Age: 84 Year
  Sex: Female

DRUGS (12)
  1. DEROXAT [Suspect]
     Indication: DEPRESSION
     Route: 048
  2. COUMADIN [Suspect]
     Route: 048
     Dates: end: 20081027
  3. VFEND [Suspect]
     Indication: FUNGAL INFECTION
     Dosage: 1UNIT PER DAY
     Route: 065
     Dates: start: 20081025, end: 20081027
  4. NEXIUM [Suspect]
     Route: 048
  5. CORDARONE [Suspect]
     Indication: ATRIAL FIBRILLATION
     Route: 048
  6. ROCEPHIN [Suspect]
     Indication: LUNG INFECTION
     Route: 065
  7. TARGOCID [Suspect]
     Indication: LUNG INFECTION
     Route: 048
  8. AMLOD [Concomitant]
     Route: 048
  9. LASILIX [Concomitant]
     Route: 048
  10. ATHYMIL [Concomitant]
     Indication: DEPRESSION
     Route: 048
  11. REMINYL [Concomitant]
     Route: 048
  12. ACETAMINOPHEN [Concomitant]
     Indication: PAIN
     Route: 048

REACTIONS (2)
  - DRUG INTERACTION [None]
  - INTERNATIONAL NORMALISED RATIO INCREASED [None]
